FAERS Safety Report 7605640-4 (Version None)
Quarter: 2011Q3

REPORT INFORMATION
  Report Type: 
  Country: None (occurrence: None)
  Receive Date: 20110713
  Receipt Date: 20110713
  Transmission Date: 20111222
  Serious: Yes (Other)
  Sender: FDA-Public Use
  Company Number: None

PATIENT
  Sex: Male
  Weight: 21.772 kg

DRUGS (2)
  1. CETIRIZINE HYDROCHLORIDE [Suspect]
     Indication: SEASONAL ALLERGY
     Dosage: 1 TEASPOON
     Route: 048
     Dates: start: 20110502, end: 20110503
  2. CETIRIZINE HYDROCHLORIDE/ZYRTEC (OTC) [Concomitant]
     Indication: SEASONAL ALLERGY
     Dosage: AS PRESCRIBED OR PER PACKAGE
     Route: 048
     Dates: start: 20060711, end: 20110501

REACTIONS (2)
  - AGGRESSION [None]
  - ABNORMAL BEHAVIOUR [None]
